FAERS Safety Report 6589503-1 (Version None)
Quarter: 2010Q1

REPORT INFORMATION
  Report Type: 
  Country: None (occurrence: None)
  Receive Date: 20100218
  Receipt Date: 20100208
  Transmission Date: 20100710
  Serious: Yes (Hospitalization)
  Sender: FDA-Public Use
  Company Number: DE-ABBOTT-09P-062-0561169-00

PATIENT
  Age: 63 Year
  Sex: Female

DRUGS (10)
  1. VALPROATE SODIUM [Suspect]
     Indication: BIPOLAR DISORDER
     Route: 048
     Dates: start: 20080820, end: 20080911
  2. VALPROATE SODIUM [Suspect]
     Indication: DEPRESSION
  3. AMITRIPTYLINE HCL [Suspect]
     Indication: DEPRESSION
     Route: 048
     Dates: start: 20040101, end: 20080819
  4. PRESOMEN [Suspect]
     Indication: HORMONE REPLACEMENT THERAPY
     Route: 048
     Dates: start: 20040101, end: 20080911
  5. ASPIRIN [Suspect]
     Indication: CORONARY ARTERY DISEASE
     Route: 048
     Dates: start: 20010101
  6. BISOPROLOL FUMARATE [Suspect]
     Indication: HYPERTENSION
     Route: 048
     Dates: start: 19950101
  7. LISINOPRIL [Suspect]
     Indication: HYPERTENSION
     Route: 048
     Dates: start: 20010101
  8. SIMVASTATIN [Suspect]
     Indication: HYPERLIPIDAEMIA
     Route: 048
     Dates: start: 20000101
  9. INFLUENZA VIRUS VACCINE POLYVALENT [Concomitant]
     Indication: INFLUENZA IMMUNISATION
     Route: 058
     Dates: start: 20080908, end: 20080908
  10. JUNIK [Concomitant]
     Indication: ASTHMA
     Route: 055
     Dates: start: 20050101

REACTIONS (6)
  - DIARRHOEA [None]
  - LIVER INJURY [None]
  - NAUSEA [None]
  - PAIN [None]
  - PYREXIA [None]
  - VOMITING [None]
